FAERS Safety Report 23260161 (Version 2)
Quarter: 2024Q1

REPORT INFORMATION
  Report Type: Spontaneous
  Country: GB (occurrence: FR)
  Receive Date: 20231204
  Receipt Date: 20240117
  Transmission Date: 20240410
  Serious: Yes (Hospitalization)
  Sender: FDA-Public Use
  Company Number: US-ROMARKLABS-2023-FR-000003

PATIENT

DRUGS (17)
  1. ALINIA [Suspect]
     Active Substance: NITAZOXANIDE
     Indication: Cryptosporidiosis infection
     Dosage: 1 TABLET TWICE DAILY
     Route: 048
     Dates: start: 20231005, end: 20231105
  2. TACROLIMUS [Concomitant]
     Active Substance: TACROLIMUS
     Dosage: 2.5 MG ONCE DAILY IN THE MORNING
     Route: 048
  3. TACROLIMUS [Concomitant]
     Active Substance: TACROLIMUS
     Dosage: 3 MG AS NEEDED
     Route: 048
  4. CELLCEPT [Concomitant]
     Active Substance: MYCOPHENOLATE MOFETIL
     Dosage: 1 TABLET TWICE DAILY
     Route: 048
  5. PREDNISONE [Concomitant]
     Active Substance: PREDNISONE
     Dosage: 1 TABLET DAILY
     Route: 048
  6. ASPIRIN [Concomitant]
     Active Substance: ASPIRIN
     Dosage: 1 TABLET DAILY AT MIDDAY
     Route: 048
  7. LERCANIDIPINE HYDROCHLORIDE [Concomitant]
     Active Substance: LERCANIDIPINE HYDROCHLORIDE
     Dosage: 1 TABLET DAILY
     Route: 048
  8. DESOGESTREL [Concomitant]
     Active Substance: DESOGESTREL
     Dosage: 1 TABLET DAILY IN THE MORNING
     Route: 048
  9. NITROGLYCERIN [Concomitant]
     Active Substance: NITROGLYCERIN
     Dosage: 0.3 MG/1 PUFF AS NEEDED
     Route: 060
  10. VALSARTAN [Concomitant]
     Active Substance: VALSARTAN
     Dosage: 1 TABLET DAILY
     Route: 048
  11. ATORVASTATIN [Concomitant]
     Active Substance: ATORVASTATIN
     Dosage: 1 TABLET DAILY
     Route: 048
  12. ANAGRELIDE HYDROCHLORIDE [Concomitant]
     Active Substance: ANAGRELIDE HYDROCHLORIDE
     Dosage: 2 CAPSULES DAILY
     Route: 048
  13. HYDREA [Concomitant]
     Active Substance: HYDROXYUREA
     Dosage: 1 CAPSULE DAILY IN THE MORNING
     Route: 048
  14. LOPERAMIDE ALMUS [Concomitant]
     Dosage: 2 CAPSULES THREE TIMES DAILY
     Route: 048
  15. RACECADOTRIL [Concomitant]
     Active Substance: RACECADOTRIL
     Dosage: 2 CAPSULES THREE TIMES DAILY
     Route: 048
  16. SMECTA [Concomitant]
     Active Substance: MONTMORILLONITE
     Dosage: 1 SACHET THREE TIMES DAILY
     Route: 048
  17. PIPERACILLIN SODIUM\TAZOBACTAM SODIUM [Concomitant]
     Active Substance: PIPERACILLIN SODIUM\TAZOBACTAM SODIUM
     Dates: start: 20231106

REACTIONS (3)
  - Haemolytic anaemia [Recovered/Resolved]
  - Liver function test abnormal [Recovered/Resolved]
  - Diarrhoea [Recovered/Resolved]
